FAERS Safety Report 22074477 (Version 1)
Quarter: 2023Q1

REPORT INFORMATION
  Report Type: Spontaneous
  Country: CN (occurrence: CN)
  Receive Date: 20230308
  Receipt Date: 20230308
  Transmission Date: 20230418
  Serious: Yes (Other)
  Sender: FDA-Public Use
  Company Number: None

PATIENT
  Age: 58 Year
  Sex: Male
  Weight: 60 kg

DRUGS (9)
  1. CYCLOPHOSPHAMIDE [Suspect]
     Active Substance: CYCLOPHOSPHAMIDE
     Indication: B-cell lymphoma
     Dosage: AT 09:13 HR, 0.8 G, QD, DILUTED WITH NORMAL SALINE 500 ML
     Route: 041
     Dates: start: 20230130, end: 20230130
  2. CYCLOPHOSPHAMIDE [Suspect]
     Active Substance: CYCLOPHOSPHAMIDE
     Indication: Chemotherapy
  3. SODIUM CHLORIDE [Suspect]
     Active Substance: SODIUM CHLORIDE
     Indication: Medication dilution
     Dosage: AT 09:13 HR, 500 ML, QD, USED TO DILUTE CYCLOPHOSPHAMIDE 0.8G
     Route: 041
     Dates: start: 20230130, end: 20230130
  4. SODIUM CHLORIDE [Suspect]
     Active Substance: SODIUM CHLORIDE
     Dosage: AT 09:13 HR, 100 ML, QD, USED TO DILUTE DOXORUBICIN HYDROCHLORIDE 80MG
     Route: 041
     Dates: start: 20230130, end: 20230130
  5. SODIUM CHLORIDE [Suspect]
     Active Substance: SODIUM CHLORIDE
     Dosage: AT 09:13 HR, 100 ML, QD, USED TO DILUTE VINCRISTINE SULFATE 1MG
     Route: 041
     Dates: start: 20230130, end: 20230130
  6. DOXORUBICIN HYDROCHLORIDE [Suspect]
     Active Substance: DOXORUBICIN HYDROCHLORIDE
     Indication: B-cell lymphoma
     Dosage: AT 09:13 HR, 80 MG, QD, DILUTED WITH NORMAL SALINE 100 ML
     Route: 041
     Dates: start: 20230130, end: 20230130
  7. DOXORUBICIN HYDROCHLORIDE [Suspect]
     Active Substance: DOXORUBICIN HYDROCHLORIDE
     Indication: Chemotherapy
  8. VINCRISTINE SULFATE [Suspect]
     Active Substance: VINCRISTINE SULFATE
     Indication: B-cell lymphoma
     Dosage: AT 09:13 HR, 1 MG, QD, DILUTED WITH NORMAL SALINE 100 ML
     Route: 041
     Dates: start: 20230130, end: 20230130
  9. VINCRISTINE SULFATE [Suspect]
     Active Substance: VINCRISTINE SULFATE
     Indication: Chemotherapy

REACTIONS (3)
  - Myelosuppression [Unknown]
  - White blood cell count decreased [Unknown]
  - Neutrophil count decreased [Unknown]

NARRATIVE: CASE EVENT DATE: 20230204
